FAERS Safety Report 25830442 (Version 1)
Quarter: 2025Q3

REPORT INFORMATION
  Report Type: Spontaneous
  Country: US (occurrence: None)
  Receive Date: 20250919
  Receipt Date: 20250919
  Transmission Date: 20251021
  Serious: Yes (Death)
  Sender: FDA-CTU
  Company Number: None

PATIENT
  Sex: Male
  Weight: 81.2 kg

DRUGS (20)
  1. ERLEADA [Suspect]
     Active Substance: APALUTAMIDE
     Indication: Prostate cancer
     Dosage: FREQUENCY : DAILY;?
     Route: 048
     Dates: start: 20220125, end: 20250917
  2. ASPIRIN [Concomitant]
     Active Substance: ASPIRIN
  3. ATORVASTATIN [Concomitant]
     Active Substance: ATORVASTATIN
  4. CEPHALEXIN [Concomitant]
     Active Substance: CEPHALEXIN
  5. ENTRESTO [Concomitant]
     Active Substance: SACUBITRIL\VALSARTAN
  6. Fish oil 1000 mg [Concomitant]
  7. FUROSEMIDE [Concomitant]
     Active Substance: FUROSEMIDE
  8. Isosorbide Dinitrate 30 mg [Concomitant]
  9. Leuprolide 1 mg/ 0.2 ml [Concomitant]
  10. METFORMIN [Concomitant]
     Active Substance: METFORMIN HYDROCHLORIDE
  11. Nitroglycerine 0.4 mg [Concomitant]
  12. RANEXA [Concomitant]
     Active Substance: RANOLAZINE
  13. Synthroid 0.125 mg [Concomitant]
  14. TAMSULOSIN [Concomitant]
     Active Substance: TAMSULOSIN
  15. Toprol XL 100 mg [Concomitant]
  16. Vitamin B12 500 mcg [Concomitant]
  17. Vitamin C 1000 mg [Concomitant]
  18. Vitamin D 50 mcg [Concomitant]
  19. Zinc 50 mg [Concomitant]
  20. GLYBURIDE [Concomitant]
     Active Substance: GLYBURIDE

REACTIONS (1)
  - Disease progression [None]
